FAERS Safety Report 7725822-0 (Version None)
Quarter: 2011Q3

REPORT INFORMATION
  Report Type: 
  Country: None (occurrence: None)
  Receive Date: 20110902
  Receipt Date: 20110823
  Transmission Date: 20111222
  Serious: Yes (Other)
  Sender: FDA-Public Use
  Company Number: FR-PFIZER INC-2011196210

PATIENT
  Age: 77 Year
  Sex: Male

DRUGS (8)
  1. CITALOPRAM [Concomitant]
  2. ATORVASTATIN [Concomitant]
  3. CLOPIDOGREL [Concomitant]
  4. DOXAZOSIN [Concomitant]
  5. METFORMIN [Concomitant]
  6. TEMSIROLIMUS [Suspect]
     Indication: METASTATIC RENAL CELL CARCINOMA
     Dosage: 25 MG MONTHLY
     Route: 042
     Dates: start: 20091101
  7. ALLOPURINOL [Concomitant]
  8. PIOGLITAZONE [Concomitant]

REACTIONS (5)
  - APHTHOUS STOMATITIS [None]
  - SCROTAL ULCER [None]
  - NORMOCHROMIC NORMOCYTIC ANAEMIA [None]
  - ANAL ULCER [None]
  - DRUG INEFFECTIVE [None]
